FAERS Safety Report 10648330 (Version 1)
Quarter: 2014Q4

REPORT INFORMATION
  Report Type: Spontaneous
  Country: US (occurrence: None)
  Receive Date: 20141203
  Receipt Date: 20141203
  Transmission Date: 20150529
  Serious: Yes (Other)
  Sender: FDA-Public Use
  Company Number: 1437723

PATIENT
  Age: 68 Year
  Sex: Female

DRUGS (3)
  1. TAXOL [Suspect]
     Active Substance: PACLITAXEL
     Indication: BREAST CANCER METASTATIC
  2. HERCEPTIN [Suspect]
     Active Substance: TRASTUZUMAB
     Indication: BREAST CANCER METASTATIC
  3. PERJETA [Suspect]
     Active Substance: PERTUZUMAB
     Indication: BREAST CANCER METASTATIC

REACTIONS (10)
  - Cardiac failure [None]
  - Recurrent cancer [None]
  - Gait disturbance [None]
  - Ephelides [None]
  - Constipation [None]
  - Rash [None]
  - Fatigue [None]
  - Abdominal pain [None]
  - Diarrhoea [None]
  - Asthenia [None]
